FAERS Safety Report 8822616 (Version 1)
Quarter: 2012Q4

REPORT INFORMATION
  Report Type: 
  Country: US (occurrence: US)
  Receive Date: 20121003
  Receipt Date: 20121003
  Transmission Date: 20130627
  Serious: No
  Sender: FDA-Public Use
  Company Number: US-BAYER-2012-102021

PATIENT
  Sex: Male

DRUGS (2)
  1. CIPRO [Suspect]
  2. MORPHINE [Concomitant]

REACTIONS (1)
  - Therapeutic response unexpected [None]
